FAERS Safety Report 5774282-8 (Version None)
Quarter: 2008Q2

REPORT INFORMATION
  Report Type: 
  Country: None (occurrence: None)
  Receive Date: 20080616
  Receipt Date: 20080606
  Transmission Date: 20081010
  Serious: Yes (Death, Hospitalization)
  Sender: FDA-Public Use
  Company Number: JP-AMGEN-US285059

PATIENT
  Sex: Female
  Weight: 35 kg

DRUGS (4)
  1. ENBREL [Suspect]
     Indication: RHEUMATOID ARTHRITIS
     Route: 058
     Dates: start: 20070326, end: 20071011
  2. SULFASALAZINE [Concomitant]
     Indication: RHEUMATOID ARTHRITIS
     Route: 048
     Dates: start: 20060512, end: 20071011
  3. MUCOSTA [Concomitant]
     Route: 048
     Dates: start: 20060512, end: 20071011
  4. LOXONIN [Concomitant]
     Indication: PAIN
     Route: 048
     Dates: start: 19870101, end: 20071011

REACTIONS (2)
  - DIFFUSE LARGE B-CELL LYMPHOMA [None]
  - PLEURAL EFFUSION [None]
